FAERS Safety Report 5612983-2 (Version None)
Quarter: 2008Q1

REPORT INFORMATION
  Report Type: 
  Country: None (occurrence: None)
  Receive Date: 20080204
  Receipt Date: 20080123
  Transmission Date: 20080703
  Serious: Yes (Hospitalization, Other)
  Sender: FDA-Public Use
  Company Number: PL-PFIZER INC-2007107672

PATIENT
  Sex: Female
  Weight: 85 kg

DRUGS (5)
  1. SU-011,248 [Suspect]
     Indication: RENAL CELL CARCINOMA
     Route: 048
  2. ENARENAL [Concomitant]
     Route: 048
     Dates: start: 20070418, end: 20071205
  3. ASPIRIN [Concomitant]
     Route: 048
  4. BETAMETHASONE [Concomitant]
     Route: 061
  5. ALL OTHER THERAPEUTIC PRODUCTS [Concomitant]
     Route: 061

REACTIONS (1)
  - HYPERTENSIVE CRISIS [None]
